FAERS Safety Report 11872836 (Version 3)
Quarter: 2016Q3

REPORT INFORMATION
  Report Type: Spontaneous
  Country: US (occurrence: US)
  Receive Date: 20151228
  Receipt Date: 20160726
  Transmission Date: 20161109
  Serious: No
  Sender: FDA-Public Use
  Company Number: US-PFIZER INC-2015178058

PATIENT
  Age: 56 Year
  Sex: Female
  Weight: 64 kg

DRUGS (19)
  1. LISINOPRIL. [Concomitant]
     Active Substance: LISINOPRIL
     Indication: HYPERTENSION
     Dosage: 10 MG, 1X/DAY
     Route: 048
  2. FLEXERIL [Concomitant]
     Active Substance: CYCLOBENZAPRINE HYDROCHLORIDE
     Indication: MUSCLE SPASMS
     Dosage: 10 MG, AS NEEDED (ONCE A DAY BY MOUTH AS NEEDED)
     Route: 048
  3. GEMFIBROZIL. [Concomitant]
     Active Substance: GEMFIBROZIL
     Dosage: 600 MG, 2X/DAY
     Route: 048
  4. ATENOLOL. [Concomitant]
     Active Substance: ATENOLOL
     Indication: BLOOD PRESSURE INCREASED
     Dosage: 50 MG, 1X/DAY
     Route: 048
  5. DEXILANT [Concomitant]
     Active Substance: DEXLANSOPRAZOLE
     Dosage: UNK
  6. LOPID [Concomitant]
     Active Substance: GEMFIBROZIL
     Dosage: UNK
  7. LYRICA [Suspect]
     Active Substance: PREGABALIN
     Indication: DIABETIC NEUROPATHY
     Dosage: 75 MG, UNK
     Dates: end: 20151101
  8. NEXIUM [Concomitant]
     Active Substance: ESOMEPRAZOLE MAGNESIUM
     Indication: ACIDOSIS
     Dosage: UNK, 2X/DAY
     Route: 048
  9. WELLBUTRIN [Concomitant]
     Active Substance: BUPROPION HYDROCHLORIDE
     Dosage: UNK
  10. LANTUS [Concomitant]
     Active Substance: INSULIN GLARGINE
     Indication: DIABETES MELLITUS
     Dosage: 40 UNITS AT BEDTIME AND 20 UNITS MORNING
  11. PRAVASTATIN. [Concomitant]
     Active Substance: PRAVASTATIN
     Dosage: 40 MG, 1X/DAY
     Route: 048
  12. ZOLOFT [Concomitant]
     Active Substance: SERTRALINE HYDROCHLORIDE
     Indication: DEPRESSION
     Dosage: 100 MG, 1X/DAY
     Route: 048
  13. ANASTROZOLE. [Concomitant]
     Active Substance: ANASTROZOLE
     Indication: BREAST CANCER
     Dosage: 1 MG, 1X/DAY
     Route: 048
  14. LYRICA [Suspect]
     Active Substance: PREGABALIN
     Dosage: 150 MG, 2X/DAY
  15. NIASPAN [Concomitant]
     Active Substance: NIACIN
     Dosage: UNK
  16. METFORMIN [Concomitant]
     Active Substance: METFORMIN HYDROCHLORIDE
     Indication: DIABETES MELLITUS
     Dosage: 500 MG, 2X/DAY (1 TABLET IN THE MORNING AND 1 TABLET IN THE EVENING BY MOUTH)
     Route: 048
  17. NIASPAN ER [Concomitant]
     Active Substance: NIACIN
     Dosage: 1000 MG, 1X/DAY (ONCE A DAY AT BEDTIME BY MOUTH)
     Route: 048
  18. GABAPENTIN. [Concomitant]
     Active Substance: GABAPENTIN
     Dosage: UNK
  19. VIT. D3 + CORAL CALCIUM [Concomitant]
     Dosage: UNK

REACTIONS (3)
  - Pain in extremity [Not Recovered/Not Resolved]
  - Drug effect incomplete [Unknown]
  - Insomnia [Not Recovered/Not Resolved]

NARRATIVE: CASE EVENT DATE: 201509
